FAERS Safety Report 24122202 (Version 1)
Quarter: 2024Q3

REPORT INFORMATION
  Report Type: Other
  Country: US (occurrence: US)
  Receive Date: 20240722
  Receipt Date: 20240722
  Transmission Date: 20241017
  Serious: Yes (Other)
  Sender: BIONPHARMA
  Company Number: US-Bion-013481

PATIENT
  Age: 60 Year
  Sex: Male

DRUGS (1)
  1. DEXAMETHASONE [Suspect]
     Active Substance: DEXAMETHASONE
     Indication: Uveitis

REACTIONS (1)
  - Cytomegalovirus chorioretinitis [Recovering/Resolving]
